FAERS Safety Report 13937851 (Version 1)
Quarter: 2017Q3

REPORT INFORMATION
  Report Type: Spontaneous
  Country: US (occurrence: US)
  Receive Date: 20170905
  Receipt Date: 20170905
  Transmission Date: 20171127
  Serious: No
  Sender: FDA-Public Use
  Company Number: US-DRREDDYS-USA/USA/17/0086160

PATIENT
  Sex: Male

DRUGS (2)
  1. FONDAPARINUX SODIUM 7.5 MG/0.6 ML [Suspect]
     Active Substance: FONDAPARINUX SODIUM
     Indication: PRODUCT USED FOR UNKNOWN INDICATION
     Dosage: 7.5 MG/0.6 ML
     Route: 058
     Dates: start: 201606
  2. FONDAPARINUX SODIUM 7.5 MG/0.6 ML [Suspect]
     Active Substance: FONDAPARINUX SODIUM
     Route: 065

REACTIONS (4)
  - Drug dose omission [Unknown]
  - Application site pain [Recovered/Resolved]
  - Product physical issue [Unknown]
  - Contusion [Unknown]
